FAERS Safety Report 9562356 (Version 1)
Quarter: 2013Q3

REPORT INFORMATION
  Report Type: Spontaneous
  Country: US (occurrence: US)
  Receive Date: 20130927
  Receipt Date: 20130927
  Transmission Date: 20140515
  Serious: No
  Sender: FDA-Public Use
  Company Number: US-B.I. PHARMACEUTICALS,INC./RIDGEFIELD-2013-BI-28951BP

PATIENT
  Sex: Female

DRUGS (2)
  1. SPIRIVA [Suspect]
     Dosage: 18 MCG
     Route: 055
     Dates: start: 201103, end: 201307
  2. VENTOLIN [Concomitant]
     Route: 055

REACTIONS (9)
  - Ovarian cyst [Not Recovered/Not Resolved]
  - Urinary tract infection [Recovered/Resolved]
  - Blood urine present [Recovered/Resolved]
  - Vision blurred [Recovered/Resolved]
  - Dry eye [Recovered/Resolved]
  - Cough [Recovered/Resolved]
  - Fungal infection [Recovered/Resolved]
  - Chest pain [Recovered/Resolved]
  - Dry mouth [Recovered/Resolved]
